FAERS Safety Report 7426850-5 (Version None)
Quarter: 2011Q2

REPORT INFORMATION
  Report Type: 
  Country: None (occurrence: None)
  Receive Date: 20110420
  Receipt Date: 20110407
  Transmission Date: 20111010
  Serious: Yes (Other)
  Sender: FDA-Public Use
  Company Number: JP-JNJFOC-20100708140

PATIENT
  Age: 7 Year
  Sex: Male

DRUGS (4)
  1. CONCERTA [Suspect]
     Indication: ILL-DEFINED DISORDER
     Route: 048
  2. CONCERTA [Suspect]
     Route: 048
  3. CONCERTA [Suspect]
     Route: 048
  4. CONCERTA [Suspect]
     Route: 048

REACTIONS (4)
  - FEAR [None]
  - AGITATION [None]
  - DECREASED APPETITE [None]
  - ENURESIS [None]
